FAERS Safety Report 11423031 (Version 1)
Quarter: 2015Q3

REPORT INFORMATION
  Report Type: Spontaneous
  Country: US (occurrence: US)
  Receive Date: 20150827
  Receipt Date: 20150827
  Transmission Date: 20151125
  Serious: No
  Sender: FDA-Public Use
  Company Number: US-GE HEALTHCARE MEDICAL DIAGNOSTICS-OSCN-PR-1404S-0083

PATIENT
  Age: 62 Year
  Sex: Female

DRUGS (11)
  1. OMNISCAN [Suspect]
     Active Substance: GADODIAMIDE
     Indication: DIAGNOSTIC PROCEDURE
  2. CITALOPRAM [Concomitant]
     Active Substance: CITALOPRAM HYDROBROMIDE
  3. XANAX [Concomitant]
     Active Substance: ALPRAZOLAM
     Dosage: 1-2X DAY
  4. METHOTREXATE [Concomitant]
     Active Substance: METHOTREXATE
  5. BACTRIM [Concomitant]
     Active Substance: SULFAMETHOXAZOLE\TRIMETHOPRIM
  6. OMNISCAN [Suspect]
     Active Substance: GADODIAMIDE
     Indication: SURGERY
     Route: 042
     Dates: start: 20140418, end: 20140418
  7. TRAMADOL. [Concomitant]
     Active Substance: TRAMADOL
  8. HUMIRA [Concomitant]
     Active Substance: ADALIMUMAB
  9. NAPROXEN. [Concomitant]
     Active Substance: NAPROXEN
  10. PREDNISONE 1% [Concomitant]
  11. MISOPROSTOL. [Concomitant]
     Active Substance: MISOPROSTOL

REACTIONS (2)
  - Nausea [Recovered/Resolved]
  - Feeling hot [Recovered/Resolved]

NARRATIVE: CASE EVENT DATE: 20140418
